FAERS Safety Report 8337141-2 (Version None)
Quarter: 2012Q2

REPORT INFORMATION
  Report Type: 
  Country: None (occurrence: None)
  Receive Date: 20120504
  Receipt Date: 20110720
  Transmission Date: 20120825
  Serious: No
  Sender: FDA-Public Use
  Company Number: US-TEVA-2011003820

PATIENT
  Sex: Male
  Weight: 86.26 kg

DRUGS (9)
  1. NUVIGIL [Suspect]
     Indication: FATIGUE
     Dosage: 150 MILLIGRAM;
     Route: 048
     Dates: start: 20110401, end: 20110701
  2. AMPYRA [Concomitant]
     Dates: start: 20110401
  3. XALATAN [Concomitant]
     Dates: start: 19910101
  4. PREDNISONE FORTE [Concomitant]
  5. ZOCOR [Concomitant]
  6. AVONEX [Concomitant]
     Dates: start: 20110601
  7. COSOPT [Concomitant]
     Dates: start: 19910101
  8. LISINOPRIL [Concomitant]
  9. NUVIGIL [Suspect]
     Route: 048

REACTIONS (2)
  - PALPITATIONS [None]
  - DYSPNOEA [None]
